FAERS Safety Report 21285229 (Version 1)
Quarter: 2022Q3

REPORT INFORMATION
  Report Type: Other
  Country: CA (occurrence: None)
  Receive Date: 20220902
  Receipt Date: 20220902
  Transmission Date: 20221027
  Serious: Yes (Other)
  Sender: FDA-Public Use
  Company Number: CA-ROCHE-1433936

PATIENT
  Age: 52 Year
  Sex: Female
  Weight: 63.1 kg

DRUGS (19)
  1. RITUXAN [Suspect]
     Active Substance: RITUXIMAB
     Indication: Rheumatoid arthritis
     Dosage: DAY 1 AND 15
     Route: 042
     Dates: start: 20091211
  2. RITUXAN [Suspect]
     Active Substance: RITUXIMAB
     Route: 042
     Dates: start: 20171003, end: 20171017
  3. RITUXAN [Suspect]
     Active Substance: RITUXIMAB
     Dosage: FIRST RPAP INFUSION 11-DEC-2009. OTHER INFUSIONS BEFORE THAT.
     Route: 042
     Dates: start: 20101126
  4. RITUXAN [Suspect]
     Active Substance: RITUXIMAB
     Route: 042
     Dates: start: 20101210
  5. RITUXAN [Suspect]
     Active Substance: RITUXIMAB
     Dosage: 1000 MG DAY 1 - 15 Q 6/12
     Route: 042
     Dates: start: 20200609
  6. RITUXAN [Suspect]
     Active Substance: RITUXIMAB
     Dosage: 500 MG/50ML, DATE OF INFUSION 26/08/2022 ,NEXT INFUSION SCHEDULE: 09/09/2022
     Route: 042
     Dates: start: 20220824
  7. ACETAMINOPHEN [Concomitant]
     Active Substance: ACETAMINOPHEN
     Indication: Premedication
     Route: 048
     Dates: start: 20091211
  8. METHYLPREDNISOLONE [Concomitant]
     Active Substance: METHYLPREDNISOLONE
     Indication: Premedication
     Route: 042
     Dates: start: 20091211
  9. METHOTREXATE [Concomitant]
     Active Substance: METHOTREXATE
  10. NEXIUM [Concomitant]
     Active Substance: ESOMEPRAZOLE MAGNESIUM
  11. MELOXICAM [Concomitant]
     Active Substance: MELOXICAM
  12. IMOVANE [Concomitant]
     Active Substance: ZOPICLONE
  13. ASPIRIN [Concomitant]
     Active Substance: ASPIRIN
  14. FOLIC ACID [Concomitant]
     Active Substance: FOLIC ACID
  15. CRESTOR [Concomitant]
     Active Substance: ROSUVASTATIN CALCIUM
  16. MELOXICAM [Concomitant]
     Active Substance: MELOXICAM
  17. ROSUVASTATIN [Concomitant]
     Active Substance: ROSUVASTATIN
  18. ZOPICLONE [Concomitant]
     Active Substance: ZOPICLONE
  19. SOLU-MEDROL [Concomitant]
     Active Substance: METHYLPREDNISOLONE SODIUM SUCCINATE
     Route: 042
     Dates: start: 20111209, end: 20111209

REACTIONS (26)
  - Mobility decreased [Not Recovered/Not Resolved]
  - Gastric ulcer [Unknown]
  - Eye swelling [Unknown]
  - Swelling face [Recovered/Resolved]
  - Rheumatoid arthritis [Unknown]
  - Blood pressure increased [Unknown]
  - Blood pressure fluctuation [Unknown]
  - Heart rate increased [Unknown]
  - Headache [Recovering/Resolving]
  - Weight decreased [Unknown]
  - Decreased appetite [Unknown]
  - Swelling face [Recovered/Resolved]
  - Palpitations [Recovered/Resolved]
  - Blood pressure systolic increased [Unknown]
  - Blood pressure diastolic decreased [Unknown]
  - Weight increased [Unknown]
  - Blood pressure systolic abnormal [Unknown]
  - Chest discomfort [Recovered/Resolved]
  - Eye swelling [Recovered/Resolved]
  - Pyrexia [Recovered/Resolved]
  - Pain [Recovered/Resolved]
  - Abdominal distension [Recovered/Resolved]
  - Musculoskeletal discomfort [Recovered/Resolved]
  - Dysphonia [Recovered/Resolved]
  - Sinusitis [Recovered/Resolved]
  - Headache [Recovered/Resolved]

NARRATIVE: CASE EVENT DATE: 20140627
